FAERS Safety Report 10982915 (Version 1)
Quarter: 2015Q1

REPORT INFORMATION
  Report Type: Spontaneous
  Country: US (occurrence: None)
  Receive Date: 20150302
  Receipt Date: 20150302
  Transmission Date: 20150721
  Serious: Yes (Other)
  Sender: FDA-Public Use
  Company Number: M2014-019

PATIENT
  Age: 21 Year
  Sex: Female

DRUGS (2)
  1. ANIMAL ALLERGENS, AP DOG HAIR AND DANDER CANIS SPP [Suspect]
     Active Substance: CANIS LUPUS FAMILIARIS DANDER\CANIS LUPUS FAMILIARIS HAIR
     Indication: IMMUNE TOLERANCE INDUCTION
     Dosage: 0.2-0.4ML/INJ/2 WEEKS?THERAPY?09/04-10/30
  2. ANIMAL ALLERGENS, AP DOG HAIR AND DANDER CANIS SPP [Suspect]
     Active Substance: CANIS LUPUS FAMILIARIS DANDER\CANIS LUPUS FAMILIARIS HAIR
     Indication: IMMUNE TOLERANCE INDUCTION

REACTIONS (6)
  - Urticaria [None]
  - Rash [None]
  - Dyspnoea [None]
  - Loss of consciousness [None]
  - Local reaction [None]
  - Pruritus [None]

NARRATIVE: CASE EVENT DATE: 20140904
